FAERS Safety Report 7259593-1 (Version None)
Quarter: 2011Q1

REPORT INFORMATION
  Report Type: 
  Country: None (occurrence: None)
  Receive Date: 20110130
  Receipt Date: 20101115
  Transmission Date: 20110831
  Serious: No
  Sender: FDA-Public Use
  Company Number: PR-ABBOTT-10P-131-0685482-00

PATIENT
  Sex: Female
  Weight: 63.56 kg

DRUGS (5)
  1. HUMIRA [Suspect]
     Indication: HIDRADENITIS
     Dosage: TWO HUMIRA PEN INJECTIONS
     Route: 058
     Dates: start: 20101104, end: 20101104
  2. HUMIRA [Suspect]
     Dosage: ONE HUMIRA PEN INJECTION
     Route: 058
     Dates: start: 20101111, end: 20101111
  3. DEPO-PROVERA [Concomitant]
     Indication: CONTRACEPTION
     Route: 058
  4. HUMIRA [Suspect]
     Route: 058
     Dates: start: 20101125
  5. DOXICICLINE [Concomitant]
     Indication: HIDRADENITIS
     Route: 048

REACTIONS (4)
  - INFLUENZA LIKE ILLNESS [None]
  - PRURITUS GENERALISED [None]
  - INJECTION SITE REACTION [None]
  - WOUND COMPLICATION [None]
